FAERS Safety Report 10146339 (Version 3)
Quarter: 2014Q3

REPORT INFORMATION
  Report Type: Report from Study
  Country: AU (occurrence: None)
  Receive Date: 20140429
  Receipt Date: 20140812
  Transmission Date: 20150326
  Serious: Yes (Death, Hospitalization)
  Sender: FDA-Public Use
  Company Number: 2307032

PATIENT
  Age: 81 Year
  Sex: Male
  Weight: 46.3 kg

DRUGS (12)
  1. INVESTIGATIONAL DRUG [Suspect]
     Active Substance: INVESTIGATIONAL PRODUCT
     Indication: SARCOMA
     Dosage: 8 MG/KG; DAY 1 AND 8 OF EACH 21 DAY CYCLE
     Route: 041
     Dates: start: 20140318, end: 20140325
  2. GEMCITABINE HYDROCHLORIDE. [Suspect]
     Active Substance: GEMCITABINE HYDROCHLORIDE
     Indication: SARCOMA METASTATIC
     Dosage: 900 MG/M 2 MILLIGRAM(S)/SQ. METER
     Route: 041
     Dates: start: 20140318, end: 20140318
  3. INVESTIGATIONAL DRUG [Suspect]
     Active Substance: INVESTIGATIONAL PRODUCT
     Indication: SARCOMA METASTATIC
     Dosage: 8 MG/KG; DAY 1 AND 8 OF EACH 21 DAY CYCLE
     Route: 041
     Dates: start: 20140318, end: 20140325
  4. PHENERGAN [Concomitant]
     Active Substance: PROMETHAZINE HYDROCHLORIDE
  5. RED BLOOD CELLS [Concomitant]
     Active Substance: HUMAN RED BLOOD CELL
  6. DOCETAXEL [Suspect]
     Active Substance: DOCETAXEL
     Indication: SARCOMA
     Dosage: 25% DOSE REDUCTION (DOSE UNKNOWN); DAY 8 OF EACH 21 DAY CYCLE
     Route: 041
     Dates: start: 20140325, end: 20140417
  7. FENTANYL. [Concomitant]
     Active Substance: FENTANYL
  8. GEMCITABINE HYDROCHLORIDE. [Suspect]
     Active Substance: GEMCITABINE HYDROCHLORIDE
     Indication: SARCOMA
     Dosage: 900 MG/M 2 MILLIGRAM(S)/SQ. METER
     Route: 041
     Dates: start: 20140318, end: 20140318
  9. OXYGEN. [Concomitant]
     Active Substance: OXYGEN
  10. ENOXAPARIN [Concomitant]
     Active Substance: ENOXAPARIN
  11. POTASSIUM [Concomitant]
     Active Substance: POTASSIUM
  12. AMPICILLIN [Concomitant]
     Active Substance: AMPICILLIN

REACTIONS (18)
  - Faecal incontinence [None]
  - Clostridium test positive [None]
  - Pneumonia [None]
  - Decreased appetite [None]
  - Anaemia [None]
  - Hypokalaemia [None]
  - Dysphagia [None]
  - Dyspnoea [None]
  - Urinary tract infection [None]
  - Nausea [None]
  - Rash [None]
  - Escherichia test positive [None]
  - Fluid intake reduced [None]
  - Infectious colitis [None]
  - Vomiting [None]
  - Fatigue [None]
  - Activities of daily living impaired [None]
  - Infusion related reaction [None]

NARRATIVE: CASE EVENT DATE: 20140327
